FAERS Safety Report 10281745 (Version 1)
Quarter: 2014Q3

REPORT INFORMATION
  Report Type: Spontaneous
  Country: IN (occurrence: IN)
  Receive Date: 20140707
  Receipt Date: 20140707
  Transmission Date: 20150326
  Serious: Yes (Hospitalization)
  Sender: FDA-Public Use
  Company Number: IN-MYLANLABS-2014S1015204

PATIENT
  Age: 3 Month
  Sex: Male

DRUGS (5)
  1. DIAZEPAM. [Concomitant]
     Active Substance: DIAZEPAM
     Dosage: DID NOT ACHIEVE SEIZURE CONTROL.
  2. PHENOBARBITAL. [Concomitant]
     Active Substance: PHENOBARBITAL
  3. MIDAZOLAM [Concomitant]
     Active Substance: MIDAZOLAM\MIDAZOLAM HYDROCHLORIDE
  4. MYRISTICA [Suspect]
     Active Substance: NUTMEG
     Route: 048
  5. PHENYTOIN. [Suspect]
     Active Substance: PHENYTOIN
     Route: 065

REACTIONS (9)
  - Iatrogenic injury [None]
  - Nystagmus [Recovered/Resolved]
  - Toxicity to various agents [Recovered/Resolved]
  - Status epilepticus [Recovered/Resolved]
  - Extrapyramidal disorder [Recovered/Resolved]
  - Visual impairment [Recovered/Resolved]
  - Sedation [None]
  - Visual evoked potentials abnormal [None]
  - Generalised tonic-clonic seizure [Recovered/Resolved]
